FAERS Safety Report 5032139-4 (Version None)
Quarter: 2006Q2

REPORT INFORMATION
  Report Type: 
  Country: None (occurrence: None)
  Receive Date: 20060619
  Receipt Date: 20060606
  Transmission Date: 20061013
  Serious: Yes (Hospitalization)
  Sender: FDA-Public Use
  Company Number: 200613444BWH

PATIENT
  Age: 57 Year
  Sex: Female

DRUGS (12)
  1. NEXAVAR [Suspect]
     Indication: NEOPLASM
     Dosage: 400 MG, BID, ORAL
     Route: 048
     Dates: start: 20060328, end: 20060517
  2. NEXAVAR [Suspect]
     Indication: RENAL MASS
     Dosage: 400 MG, BID, ORAL
     Route: 048
     Dates: start: 20060328, end: 20060517
  3. NEXAVAR [Suspect]
     Indication: NEOPLASM
     Dosage: 400 MG, BID, ORAL
     Route: 048
     Dates: start: 20060522, end: 20060606
  4. NEXAVAR [Suspect]
     Indication: RENAL MASS
     Dosage: 400 MG, BID, ORAL
     Route: 048
     Dates: start: 20060522, end: 20060606
  5. TAXOTERE [Concomitant]
  6. HYDROCHLOROTHIAZIDE [Concomitant]
  7. VICODIN [Concomitant]
  8. BENICAR [Concomitant]
  9. TOPAMAX [Concomitant]
  10. CELEBREX [Concomitant]
  11. PROTONIX [Concomitant]
  12. VYTORIN [Concomitant]

REACTIONS (9)
  - BLISTER [None]
  - BURNING SENSATION [None]
  - DYSPHAGIA [None]
  - HAEMORRHAGE [None]
  - HYPERKERATOSIS [None]
  - HYPOKALAEMIA [None]
  - PAIN [None]
  - SKIN EXFOLIATION [None]
  - STOMATITIS [None]
